FAERS Safety Report 7690578-7 (Version None)
Quarter: 2011Q3

REPORT INFORMATION
  Report Type: 
  Country: None (occurrence: None)
  Receive Date: 20110812
  Receipt Date: 20110729
  Transmission Date: 20111222
  Serious: Yes (Life-Threatening)
  Sender: FDA-Public Use
  Company Number: LTI2011A00229

PATIENT
  Age: 71 Year
  Sex: Female

DRUGS (13)
  1. LANTUS [Concomitant]
  2. DIAMOX [Suspect]
     Dosage: 125 MG (125 MG,1 IN 1 D) ORAL
     Route: 048
     Dates: end: 20110530
  3. SIMVASTATIN [Concomitant]
  4. CIPROFLOXACIN [Concomitant]
  5. ONGLYZA [Concomitant]
  6. AUGMENTIN (AMOXICILLIN SODIUM, CLAVULANATE POTASSIUM) [Concomitant]
  7. ACTOS [Suspect]
     Indication: TYPE 2 DIABETES MELLITUS
     Dosage: 30 MG (30 MG,1 IN 1 D) ORAL
     Route: 048
     Dates: end: 20110530
  8. NEBIVOLOL HCL [Concomitant]
  9. OMEPRAZOLE [Suspect]
     Dosage: 40 MG (40 MG,1 IN 1 D) ORAL
     Route: 048
     Dates: end: 20110530
  10. SYMBICORT [Concomitant]
  11. METFORMIN HCL [Suspect]
     Dosage: 3000 MG (1000 MG,3 IN 1 D) ORAL
     Route: 048
     Dates: end: 20110530
  12. ZESTORETIC [Suspect]
     Dosage: 1 DF (1 DF,1 IN 1 D) ORAL
     Route: 048
     Dates: end: 20110530
  13. SPIRIVA [Concomitant]

REACTIONS (9)
  - RENAL FAILURE [None]
  - TACHYPNOEA [None]
  - BLOOD PRESSURE SYSTOLIC INCREASED [None]
  - HEART RATE INCREASED [None]
  - HYPERKALAEMIA [None]
  - DECREASED APPETITE [None]
  - URINARY TRACT INFECTION [None]
  - LACTIC ACIDOSIS [None]
  - DIARRHOEA [None]
